FAERS Safety Report 7253828-7 (Version None)
Quarter: 2011Q1

REPORT INFORMATION
  Report Type: 
  Country: None (occurrence: None)
  Receive Date: 20110129
  Receipt Date: 20100414
  Transmission Date: 20110831
  Serious: No
  Sender: FDA-Public Use
  Company Number: US-ABBOTT-10P-163-0638561-00

PATIENT
  Sex: Female
  Weight: 72.64 kg

DRUGS (8)
  1. MOTRIN [Concomitant]
     Indication: PRODUCT USED FOR UNKNOWN INDICATION
  2. HUMIRA [Suspect]
     Indication: RHEUMATOID ARTHRITIS
     Dates: start: 20100204
  3. VICODIN [Concomitant]
     Indication: PRODUCT USED FOR UNKNOWN INDICATION
  4. IRON [Concomitant]
     Indication: MINERAL SUPPLEMENTATION
  5. VITAMIN D [Concomitant]
     Indication: VITAMIN SUPPLEMENTATION
  6. MULTI-VITAMIN [Concomitant]
     Indication: VITAMIN SUPPLEMENTATION
  7. TRIFLEX GLUCOSAMINE SUPPLEMENT [Concomitant]
     Indication: ARTHROPATHY
  8. UNKNOWN MEDICATION [Concomitant]
     Indication: FLUID RETENTION

REACTIONS (3)
  - INFLAMMATORY PAIN [None]
  - RHEUMATOID ARTHRITIS [None]
  - INJECTION SITE PAIN [None]
